FAERS Safety Report 5450076-8 (Version None)
Quarter: 2007Q3

REPORT INFORMATION
  Report Type: 
  Country: None (occurrence: None)
  Receive Date: 20070912
  Receipt Date: 20070904
  Transmission Date: 20080115
  Serious: Yes (Hospitalization, Other)
  Sender: FDA-Public Use
  Company Number: FR-MERCK-0709FRA00012

PATIENT
  Age: 77 Year
  Sex: Female

DRUGS (9)
  1. COZAAR [Suspect]
     Indication: HYPERTENSION
     Route: 048
     Dates: start: 20070626, end: 20070808
  2. MEPROBAMATE [Suspect]
     Route: 048
     Dates: start: 20070803, end: 20070808
  3. DONEPEZIL HCL [Suspect]
     Indication: DEMENTIA
     Route: 048
     Dates: start: 20070626, end: 20070808
  4. ACETAMINOPHEN AND PROPOXYPHENE HYDROCHLORIDE [Suspect]
     Route: 048
     Dates: start: 20070626, end: 20070706
  5. ACETAMINOPHEN [Suspect]
     Route: 048
     Dates: start: 20070806, end: 20070808
  6. MIANSERIN HYDROCHLORIDE [Suspect]
     Indication: DEPRESSION
     Route: 048
     Dates: start: 20070729, end: 20070807
  7. BLACK HOREHOUND AND HAWTHORN AND PASSIONFLOWER AND VALERIAN [Suspect]
     Route: 048
     Dates: start: 20070802, end: 20070808
  8. FLUINDIONE [Suspect]
     Indication: PROPHYLAXIS
     Route: 048
     Dates: start: 20070301, end: 20070807
  9. FLUINDIONE [Suspect]
     Indication: PULMONARY EMBOLISM
     Route: 048
     Dates: start: 20070301, end: 20070807

REACTIONS (5)
  - FALL [None]
  - HAEMATOMA [None]
  - HEPATITIS CHOLESTATIC [None]
  - MALAISE [None]
  - ORTHOSTATIC HYPOTENSION [None]
